FAERS Safety Report 16966645 (Version 7)
Quarter: 2020Q1

REPORT INFORMATION
  Report Type: Report from Study
  Country: US (occurrence: US)
  Receive Date: 20191028
  Receipt Date: 20200213
  Transmission Date: 20200409
  Serious: Yes (Hospitalization, Other)
  Sender: FDA-Public Use
  Company Number: US-PFIZER INC-2019421133

PATIENT
  Age: 79 Year
  Sex: Female

DRUGS (3)
  1. FASLODEX [Suspect]
     Active Substance: FULVESTRANT
     Dosage: UNK
     Route: 030
  2. IBRANCE [Suspect]
     Active Substance: PALBOCICLIB
     Indication: BREAST CANCER FEMALE
     Dosage: 125 MG, CYCLIC (DAILY FOR 21 DAYS ON AND 7 DAYS OFF)
     Route: 048
     Dates: start: 20190916
  3. IBRANCE [Suspect]
     Active Substance: PALBOCICLIB
     Dosage: 125 MG, CYCLIC (DAILY FOR 21 DAYS ON AND 7 DAYS OFF)
     Route: 048
     Dates: start: 20200210

REACTIONS (13)
  - Fall [Unknown]
  - Facial bones fracture [Unknown]
  - Influenza [Unknown]
  - Rash [Recovering/Resolving]
  - Cough [Recovering/Resolving]
  - Electrolyte imbalance [Unknown]
  - Diarrhoea [Unknown]
  - White blood cell count decreased [Recovering/Resolving]
  - Pain [Unknown]
  - Bone marrow failure [Unknown]
  - Cerebral haemorrhage [Unknown]
  - Platelet count decreased [Recovering/Resolving]
  - Throat irritation [Recovering/Resolving]

NARRATIVE: CASE EVENT DATE: 2019
